FAERS Safety Report 8996877 (Version 3)
Quarter: 2013Q1

REPORT INFORMATION
  Report Type: Spontaneous
  Country: JP (occurrence: JP)
  Receive Date: 20130104
  Receipt Date: 20130125
  Transmission Date: 20140127
  Serious: Yes (Death, Hospitalization)
  Sender: FDA-Public Use
  Company Number: JP-GENZYME-FABR-1002935

PATIENT
  Age: 57 Year
  Sex: Male

DRUGS (1)
  1. FABRAZYME [Suspect]
     Indication: FABRY^S DISEASE
     Dosage: UNK
     Route: 042

REACTIONS (2)
  - Arrhythmia [Fatal]
  - Renal impairment [Unknown]
